FAERS Safety Report 25067636 (Version 1)
Quarter: 2025Q1

REPORT INFORMATION
  Report Type: Spontaneous
  Country: CA (occurrence: CA)
  Receive Date: 20250312
  Receipt Date: 20250312
  Transmission Date: 20250408
  Serious: Yes (Other)
  Sender: BOEHRINGER INGELHEIM
  Company Number: CA-BoehringerIngelheim-2025-BI-014410

PATIENT
  Age: 67 Year
  Sex: Female

DRUGS (5)
  1. DIPYRIDAMOLE [Suspect]
     Active Substance: DIPYRIDAMOLE
     Indication: Platelet count decreased
  2. ALBUREX [Suspect]
     Active Substance: ALBUMIN HUMAN
     Indication: Blood albumin decreased
  3. CIPRO CIPROFLOXACIN [Concomitant]
     Indication: Antibiotic therapy
  4. ERTAPENEM [Concomitant]
     Active Substance: ERTAPENEM
     Indication: Antibiotic therapy
  5. RIFAXIMIN [Concomitant]
     Active Substance: RIFAXIMIN
     Indication: Antibiotic therapy

REACTIONS (3)
  - Transfusion-associated dyspnoea [Unknown]
  - Pyrexia [Unknown]
  - Staphylococcal infection [Unknown]
